FAERS Safety Report 23110138 (Version 1)
Quarter: 2023Q4

REPORT INFORMATION
  Report Type: Spontaneous
  Country: US (occurrence: None)
  Receive Date: 20231024
  Receipt Date: 20231024
  Transmission Date: 20240109
  Serious: Yes (Hospitalization)
  Sender: FDA-Public Use
  Company Number: None

PATIENT
  Age: 54 Year
  Sex: Female

DRUGS (1)
  1. LISINOPRIL [Suspect]
     Active Substance: LISINOPRIL
     Dosage: FREQUENCY : DAILY;?
     Route: 048
     Dates: start: 20131229, end: 20221014

REACTIONS (5)
  - Rash [None]
  - Swelling face [None]
  - Ear swelling [None]
  - Swelling [None]
  - Eye swelling [None]

NARRATIVE: CASE EVENT DATE: 20221014
